FAERS Safety Report 14954029 (Version 4)
Quarter: 2019Q3

REPORT INFORMATION
  Report Type: Report from Study
  Country: DE (occurrence: DE)
  Receive Date: 20180530
  Receipt Date: 20190816
  Transmission Date: 20191004
  Serious: Yes (Hospitalization)
  Sender: FDA-Public Use
  Company Number: DE-BIOGEN-2018BI00586844

PATIENT
  Age: 30 Year
  Sex: Male
  Weight: 73 kg

DRUGS (4)
  1. NOVAMINSULFON [Concomitant]
     Active Substance: METAMIZOLE
     Indication: MULTIPLE SCLEROSIS
     Dosage: AS NEEDED
     Route: 050
     Dates: start: 20150701
  2. TYSABRI [Suspect]
     Active Substance: NATALIZUMAB
     Route: 042
  3. SILDENAFIL. [Concomitant]
     Active Substance: SILDENAFIL
     Indication: MULTIPLE SCLEROSIS
     Dosage: AS NEEDED
     Route: 050
     Dates: start: 20140721
  4. TYSABRI [Suspect]
     Active Substance: NATALIZUMAB
     Indication: MULTIPLE SCLEROSIS
     Route: 050
     Dates: start: 20140319

REACTIONS (1)
  - Multiple sclerosis relapse [Unknown]

NARRATIVE: CASE EVENT DATE: 20180324
